FAERS Safety Report 11860680 (Version 3)
Quarter: 2016Q2

REPORT INFORMATION
  Report Type: Report from Study
  Country: US (occurrence: US)
  Receive Date: 20151222
  Receipt Date: 20160513
  Transmission Date: 20160815
  Serious: Yes (Other)
  Sender: FDA-Public Use
  Company Number: US-GILEAD-2015-0188564

PATIENT
  Age: 71 Year
  Sex: Male

DRUGS (3)
  1. IDELALISIB [Suspect]
     Active Substance: IDELALISIB
     Indication: CHRONIC LYMPHOCYTIC LEUKAEMIA
     Dosage: 150 MG, BID
     Route: 048
     Dates: start: 20150212, end: 20150223
  2. IDELALISIB [Suspect]
     Active Substance: IDELALISIB
     Dosage: 100 MG, BID
     Route: 048
     Dates: start: 20150302, end: 20160411
  3. IDELALISIB [Suspect]
     Active Substance: IDELALISIB
     Dosage: 100 MG, BID
     Route: 048
     Dates: start: 20160504

REACTIONS (12)
  - Muscle spasms [Unknown]
  - Squamous cell carcinoma of skin [Unknown]
  - Pollakiuria [Unknown]
  - Fatigue [Unknown]
  - Squamous cell carcinoma [Unknown]
  - Ocular hyperaemia [Unknown]
  - Insomnia [Unknown]
  - Night sweats [Unknown]
  - Nervousness [Unknown]
  - Constipation [Unknown]
  - Impaired healing [Unknown]
  - Eye irritation [Unknown]

NARRATIVE: CASE EVENT DATE: 201506
